FAERS Safety Report 9346986 (Version 2)
Quarter: 2013Q3

REPORT INFORMATION
  Report Type: Report from Study
  Country: US (occurrence: US)
  Receive Date: 20130613
  Receipt Date: 20130708
  Transmission Date: 20140515
  Serious: Yes (Other)
  Sender: FDA-Public Use
  Company Number: US-BRISTOL-MYERS SQUIBB COMPANY-18977652

PATIENT
  Age: 40 Year
  Sex: Male
  Weight: 76.5 kg

DRUGS (2)
  1. IPILIMUMAB [Suspect]
     Indication: MALIGNANT MELANOMA
     Dosage: INDU?3MG/KG OVER90MINSQ3 WKS*4?MAIN?3MG/KGOVER90MINSON24,36,48,60WKS
     Route: 042
     Dates: start: 20130506, end: 20130506
  2. INTERFERON ALFA-2B [Suspect]
     Indication: MALIGNANT MELANOMA
     Dosage: MISSED ON 27MAY2013?IDF:608MU?IND:20MU/M2 OVR 20MIN ON 1-5*4WKSFOLLOWED BY10MU/M2 SQ
     Dates: start: 20130506, end: 20130528

REACTIONS (3)
  - Hypertriglyceridaemia [Not Recovered/Not Resolved]
  - Neutrophil count decreased [Not Recovered/Not Resolved]
  - White blood cell count decreased [Not Recovered/Not Resolved]
